FAERS Safety Report 10816539 (Version 5)
Quarter: 2015Q3

REPORT INFORMATION
  Report Type: Report from Study
  Country: US (occurrence: US)
  Receive Date: 20150218
  Receipt Date: 20150904
  Transmission Date: 20151125
  Serious: No
  Sender: FDA-Public Use
  Company Number: US-GILEAD-2015-0137908

PATIENT
  Age: 56 Year
  Sex: Male
  Weight: 83.9 kg

DRUGS (4)
  1. AMBRISENTAN [Suspect]
     Active Substance: AMBRISENTAN
     Indication: PULMONARY ARTERIAL HYPERTENSION
     Dosage: 10 MG, QD
     Route: 065
     Dates: start: 20141003
  2. REMODULIN [Suspect]
     Active Substance: TREPROSTINIL
     Indication: PULMONARY ARTERIAL HYPERTENSION
     Dosage: 0.037 MCG/KG/MIN
     Route: 058
     Dates: start: 20111130
  3. REVATIO [Concomitant]
     Active Substance: SILDENAFIL CITRATE
     Dosage: UNK
  4. SILDENAFIL. [Concomitant]
     Active Substance: SILDENAFIL

REACTIONS (6)
  - Myalgia [Unknown]
  - Hypersensitivity [Unknown]
  - Nasal congestion [Unknown]
  - Pain [Unknown]
  - Asthenia [Unknown]
  - Infusion site pain [Unknown]

NARRATIVE: CASE EVENT DATE: 201502
